FAERS Safety Report 16994703 (Version 1)
Quarter: 2019Q4

REPORT INFORMATION
  Report Type: Spontaneous
  Country: US (occurrence: US)
  Receive Date: 20191105
  Receipt Date: 20191105
  Transmission Date: 20200122
  Serious: Yes (Other)
  Sender: FDA-Public Use
  Company Number: US-NODEN PHARMA DAC_ NOD-2019-000167

PATIENT
  Sex: Male

DRUGS (1)
  1. TEKTURNA [Suspect]
     Active Substance: ALISKIREN HEMIFUMARATE
     Indication: PRODUCT USED FOR UNKNOWN INDICATION
     Dosage: 300 MILLIGRAM, TIMES PER
     Route: 065

REACTIONS (4)
  - Vomiting [Unknown]
  - Malaise [Unknown]
  - Wrong technique in product usage process [Unknown]
  - Surgery [Unknown]
